FAERS Safety Report 23103759 (Version 3)
Quarter: 2023Q4

REPORT INFORMATION
  Report Type: Spontaneous
  Country: US (occurrence: US)
  Receive Date: 20231025
  Receipt Date: 20231206
  Transmission Date: 20240110
  Serious: No
  Sender: FDA-Public Use
  Company Number: US-PFIZER INC-PV202300165574

PATIENT
  Age: 22 Year
  Sex: Female
  Weight: 72.57 kg

DRUGS (1)
  1. DEPO-PROVERA [Suspect]
     Active Substance: MEDROXYPROGESTERONE ACETATE
     Indication: Contraception
     Dosage: UNK
     Route: 058
     Dates: start: 20230701

REACTIONS (2)
  - Circumstance or information capable of leading to device use error [Unknown]
  - Device defective [Unknown]

NARRATIVE: CASE EVENT DATE: 20230701
